FAERS Safety Report 5378320-6 (Version None)
Quarter: 2007Q3

REPORT INFORMATION
  Report Type: 
  Country: None (occurrence: None)
  Receive Date: 20070702
  Receipt Date: 20070620
  Transmission Date: 20080115
  Serious: Yes (Other)
  Sender: FDA-Public Use
  Company Number: B0476959A

PATIENT
  Age: 24 Year
  Sex: Male

DRUGS (3)
  1. LAMIVUDINE [Suspect]
     Indication: HIV INFECTION
  2. STAVUDINE [Suspect]
     Indication: HIV INFECTION
  3. EFAVIRENZ [Suspect]
     Indication: HIV INFECTION

REACTIONS (8)
  - BREAST MICROCALCIFICATION [None]
  - CALCINOSIS [None]
  - GYNAECOMASTIA [None]
  - HEPATIC STEATOSIS [None]
  - LYMPHADENOPATHY [None]
  - NUCLEAR MAGNETIC RESONANCE IMAGING ABNORMAL [None]
  - SCROTAL DISORDER [None]
  - SPLENOMEGALY [None]
